FAERS Safety Report 19155440 (Version 2)
Quarter: 2024Q1

REPORT INFORMATION
  Report Type: Report from Study
  Country: CA (occurrence: CA)
  Receive Date: 20210420
  Receipt Date: 20240117
  Transmission Date: 20240410
  Serious: Yes (Hospitalization)
  Sender: FDA-Public Use
  Company Number: CA-CELLTRION INC.-2021CA005089

PATIENT

DRUGS (2)
  1. RITUXIMAB [Suspect]
     Active Substance: RITUXIMAB
     Indication: Neuromyelitis optica spectrum disorder
     Dosage: UNK
     Route: 041
  2. RITUXIMAB [Suspect]
     Active Substance: RITUXIMAB
     Dosage: UNK
     Route: 065

REACTIONS (3)
  - Visual impairment [Unknown]
  - B-lymphocyte count decreased [Unknown]
  - Intentional product use issue [Unknown]
